FAERS Safety Report 20216407 (Version 4)
Quarter: 2022Q1

REPORT INFORMATION
  Report Type: Report from Study
  Country: BE (occurrence: BE)
  Receive Date: 20211222
  Receipt Date: 20220211
  Transmission Date: 20220423
  Serious: Yes (Hospitalization)
  Sender: FDA-Public Use
  Company Number: BE-NOVARTISPH-NVSC2021BE286296

PATIENT
  Age: 45 Year
  Sex: Male
  Weight: 101 kg

DRUGS (4)
  1. OFATUMUMAB [Suspect]
     Active Substance: OFATUMUMAB
     Indication: Multiple sclerosis relapse
     Dosage: UNK
     Route: 058
     Dates: start: 20190721
  2. OFATUMUMAB [Suspect]
     Active Substance: OFATUMUMAB
     Indication: Multiple sclerosis relapse
     Dosage: UNK
     Route: 058
     Dates: start: 20190715
  3. OFATUMUMAB [Suspect]
     Active Substance: OFATUMUMAB
     Dosage: AT ABDOMINAL LEFT
     Route: 058
     Dates: start: 20210711
  4. METHYLPHENIDATE HYDROCHLORIDE [Concomitant]
     Active Substance: METHYLPHENIDATE HYDROCHLORIDE
     Indication: Hypersomnia
     Dosage: UNK
     Route: 065
     Dates: start: 20190411

REACTIONS (1)
  - Prostatitis [Not Recovered/Not Resolved]

NARRATIVE: CASE EVENT DATE: 20211209
